FAERS Safety Report 4765116-9 (Version None)
Quarter: 2005Q3

REPORT INFORMATION
  Report Type: 
  Country: None (occurrence: None)
  Receive Date: 20050907
  Receipt Date: 20050829
  Transmission Date: 20060218
  Serious: Yes (Other)
  Sender: FDA-Public Use
  Company Number: 200511474BWH

PATIENT
  Sex: Female

DRUGS (11)
  1. CIPRO [Suspect]
     Indication: OTITIS EXTERNA
     Dosage: 750 MG, BID, ORAL
     Route: 048
     Dates: start: 20020515, end: 20020517
  2. CIPRO [Suspect]
     Indication: OTITIS EXTERNA
     Dosage: 750 MG, BID, ORAL
     Route: 048
     Dates: start: 20020613, end: 20020626
  3. CIPRO [Suspect]
     Indication: OTITIS EXTERNA
     Dosage: 750 MG, BID, ORAL
     Route: 048
     Dates: start: 20020709, end: 20020722
  4. CORTISPORIN [Suspect]
     Dosage: SEE IMAGE
     Route: 001
     Dates: start: 20020508, end: 20020731
  5. CORTISPORIN [Suspect]
     Dosage: SEE IMAGE
     Route: 001
     Dates: start: 20020731, end: 20020803
  6. FLOXIN OTIC [Concomitant]
  7. NEOPOLY HC 1% [Concomitant]
  8. CSF [Concomitant]
  9. GENTIAN VIOLET [Concomitant]
  10. NEOSPORIN [Concomitant]
  11. ALCOHOL [Concomitant]

REACTIONS (25)
  - ADHESION [None]
  - ARTHRALGIA [None]
  - CERUMEN IMPACTION [None]
  - CONDITION AGGRAVATED [None]
  - CONDUCTIVE DEAFNESS [None]
  - DEAFNESS [None]
  - DISEASE RECURRENCE [None]
  - DRUG INTERACTION [None]
  - EAR PRURITUS [None]
  - FACIAL PAIN [None]
  - JOINT DISLOCATION [None]
  - LABYRINTHITIS [None]
  - MASTOID DISORDER [None]
  - MUSCLE SPASMS [None]
  - NECK PAIN [None]
  - NEURALGIA [None]
  - OTITIS EXTERNA [None]
  - OTITIS MEDIA CHRONIC [None]
  - OTORRHOEA [None]
  - OTOTOXICITY [None]
  - POSTOPERATIVE INFECTION [None]
  - PURULENT DISCHARGE [None]
  - SCAR [None]
  - TEMPOROMANDIBULAR JOINT SYNDROME [None]
  - TYMPANIC MEMBRANE PERFORATION [None]
